FAERS Safety Report 16761852 (Version 2)
Quarter: 2019Q4

REPORT INFORMATION
  Report Type: Spontaneous
  Country: US (occurrence: US)
  Receive Date: 20190830
  Receipt Date: 20191010
  Transmission Date: 20200122
  Serious: No
  Sender: FDA-Public Use
  Company Number: US-PFIZER INC-2019368934

PATIENT
  Age: 72 Year
  Sex: Female
  Weight: 64.85 kg

DRUGS (1)
  1. PREMARIN [Suspect]
     Active Substance: ESTROGENS, CONJUGATED
     Dosage: 1 G, 2X/WEEK
     Dates: start: 2011

REACTIONS (4)
  - Off label use [Unknown]
  - Product container seal issue [Unknown]
  - Peripheral coldness [Unknown]
  - Poor quality product administered [Unknown]
